FAERS Safety Report 4698039-4 (Version None)
Quarter: 2005Q2

REPORT INFORMATION
  Report Type: 
  Country: None (occurrence: None)
  Receive Date: 20050623
  Receipt Date: 20050426
  Transmission Date: 20051028
  Serious: Yes (Life-Threatening, Hospitalization, Disabling)
  Sender: FDA-Public Use
  Company Number: GBWYE625727APR05

PATIENT
  Sex: Male

DRUGS (4)
  1. ENBREL [Suspect]
     Indication: RHEUMATOID ARTHRITIS
     Dosage: UNKNOWN
     Route: 058
     Dates: start: 20041116, end: 20050407
  2. PREDNISOLONE [Concomitant]
     Dates: start: 20010208
  3. METHOTREXATE [Concomitant]
  4. HYDROXYCHLOROQUINE SULFATE [Concomitant]
     Dates: start: 20020822

REACTIONS (2)
  - COLON CANCER [None]
  - HAEMORRHOIDS [None]
